FAERS Safety Report 15247565 (Version 1)
Quarter: 2018Q3

REPORT INFORMATION
  Report Type: Report from Study
  Country: US (occurrence: US)
  Receive Date: 20180807
  Receipt Date: 20180807
  Transmission Date: 20181010
  Serious: Yes (Death)
  Sender: FDA-Public Use
  Company Number: US-ROCHE-2163535

PATIENT
  Sex: Female

DRUGS (1)
  1. VALGANCICLOVIR. [Suspect]
     Active Substance: VALGANCICLOVIR
     Indication: LUNG TRANSPLANT
     Dosage: 50MG/ML ORAL SUSP.?TOOK 9ML (450MG) DAILY
     Route: 048

REACTIONS (4)
  - Death [Fatal]
  - Intentional product use issue [Unknown]
  - Off label use [Unknown]
  - No adverse event [Unknown]
